FAERS Safety Report 4725691-7 (Version None)
Quarter: 2005Q3

REPORT INFORMATION
  Report Type: 
  Country: None (occurrence: None)
  Receive Date: 20050727
  Receipt Date: 20050317
  Transmission Date: 20060218
  Serious: Yes (Hospitalization)
  Sender: FDA-Public Use
  Company Number: BEWYE520721MAR05

PATIENT
  Sex: Female

DRUGS (6)
  1. ENBREL [Suspect]
     Indication: ANKYLOSING SPONDYLITIS
     Route: 058
     Dates: start: 20041123, end: 20050315
  2. PAMIDRONATE DISODIUM [Concomitant]
     Dates: start: 20040331, end: 20040608
  3. PAMIDRONATE DISODIUM [Concomitant]
     Dates: start: 20040622, end: 20040928
  4. NICOTIBINE [Concomitant]
     Dates: start: 20041001
  5. METHYLPREDNISOLONE [Concomitant]
     Dates: start: 20040312, end: 20050228
  6. PIROXICAM [Concomitant]
     Dates: start: 20040604, end: 20050228

REACTIONS (1)
  - CROHN'S DISEASE [None]
